FAERS Safety Report 6120485-2 (Version None)
Quarter: 2009Q1

REPORT INFORMATION
  Report Type: 
  Country: None (occurrence: None)
  Receive Date: 20090317
  Receipt Date: 20090313
  Transmission Date: 20090719
  Serious: Yes (Hospitalization)
  Sender: FDA-Public Use
  Company Number: US-BRISTOL-MYERS SQUIBB COMPANY-14542526

PATIENT
  Age: 61 Year
  Sex: Male
  Weight: 46 kg

DRUGS (3)
  1. CISPLATIN [Suspect]
     Indication: OESOPHAGEAL CARCINOMA
     Dosage: 25MG/M2-6CYCLES;1CYCLE=1WEEK; 1ST CYCLE:20JAN09; TOTAL CYCLE 6; DOSE REDUCED:09FEB09(3RD CYCLE)
     Dates: start: 20090223, end: 20090223
  2. TAXOL [Suspect]
     Indication: OESOPHAGEAL CARCINOMA
     Dosage: 50MG/M2-6CYCLES;1CYCLE=1WEEK; 1ST CYCLE:20JAN09; TOTAL CYCLE 6; DOSE REDUCED:09FEB09(3RD CYCLE)
     Dates: start: 20090223, end: 20090223
  3. RADIATION THERAPY [Suspect]
     Indication: OESOPHAGEAL CARCINOMA
     Dosage: 1 DOSAGE FORM = 50.4 GY IN 28 FRACTIONS AND 43 ELASPED DAYS
     Dates: start: 20090304, end: 20090304

REACTIONS (3)
  - BLOOD MAGNESIUM DECREASED [None]
  - DEHYDRATION [None]
  - OESOPHAGITIS [None]
